FAERS Safety Report 12356889 (Version 1)
Quarter: 2016Q2

REPORT INFORMATION
  Report Type: Spontaneous
  Country: US (occurrence: US)
  Receive Date: 20160511
  Receipt Date: 20160511
  Transmission Date: 20160815
  Serious: No
  Sender: FDA-Public Use
  Company Number: US-PFIZER INC-2016246150

PATIENT
  Sex: Female

DRUGS (2)
  1. METHOTREXATE SODIUM. [Suspect]
     Active Substance: METHOTREXATE SODIUM
     Dosage: 0.5 ML WEEKLY
  2. XELJANZ [Suspect]
     Active Substance: TOFACITINIB CITRATE
     Dosage: 5 MG TABLETS, 2X/DAY

REACTIONS (7)
  - Fatigue [Unknown]
  - Weight decreased [Unknown]
  - Dry eye [Unknown]
  - Vision blurred [Unknown]
  - Oedema [Unknown]
  - Seasonal affective disorder [Unknown]
  - Contusion [Unknown]
